FAERS Safety Report 8321465-9 (Version None)
Quarter: 2012Q2

REPORT INFORMATION
  Report Type: 
  Country: None (occurrence: None)
  Receive Date: 20120430
  Receipt Date: 20120430
  Transmission Date: 20120825
  Serious: Yes (Other)
  Sender: FDA-Public Use
  Company Number: None

PATIENT
  Age: 55 Year
  Sex: Female
  Weight: 89.811 kg

DRUGS (1)
  1. CYMBALTA [Suspect]
     Indication: FIBROMYALGIA

REACTIONS (5)
  - SPEECH DISORDER [None]
  - MEMORY IMPAIRMENT [None]
  - HYPOAESTHESIA ORAL [None]
  - ABNORMAL BEHAVIOUR [None]
  - EDUCATIONAL PROBLEM [None]
